FAERS Safety Report 11192568 (Version 1)
Quarter: 2015Q2

REPORT INFORMATION
  Report Type: Spontaneous
  Country: US (occurrence: None)
  Receive Date: 20150612
  Receipt Date: 20150612
  Transmission Date: 20150821
  Serious: Yes (Hospitalization)
  Sender: FDA-Public Use
  Company Number: 15US005697

PATIENT
  Age: 62 Year
  Sex: Male
  Weight: 59 kg

DRUGS (1)
  1. PICATO [Suspect]
     Active Substance: INGENOL MEBUTATE
     Indication: ACTINIC KERATOSIS
     Dosage: 1 APPLICATION
     Route: 061
     Dates: start: 20150407, end: 20150409

REACTIONS (3)
  - Sinusitis [None]
  - Sepsis [None]
  - Asthenia [None]

NARRATIVE: CASE EVENT DATE: 20150515
